FAERS Safety Report 5646368-X (Version None)
Quarter: 2008Q1

REPORT INFORMATION
  Report Type: 
  Country: None (occurrence: None)
  Receive Date: 20080227
  Receipt Date: 20080212
  Transmission Date: 20080703
  Serious: Yes (Hospitalization)
  Sender: FDA-Public Use
  Company Number: 6037085

PATIENT

DRUGS (3)
  1. BISOPROLOL FUMARATE [Suspect]
     Dosage: 5 MG (5 MG, 1 IN 1 D) ORAL
     Route: 048
     Dates: start: 20070501
  2. KENZEN (8 MG, TABLET) (CANDESARTAN CILEXETIL) [Suspect]
     Dosage: 8 MG (8 MG, 1 IN 1 D) ORAL
     Route: 048
     Dates: start: 20070601, end: 20070801
  3. FUROSEMIDE (20 MG, TABLET) (FUROSEMIDE) [Concomitant]

REACTIONS (5)
  - ASTHENIA [None]
  - CHEST PAIN [None]
  - COOMBS POSITIVE HAEMOLYTIC ANAEMIA [None]
  - GAMMOPATHY [None]
  - OEDEMA PERIPHERAL [None]
